FAERS Safety Report 10415606 (Version 1)
Quarter: 2014Q3

REPORT INFORMATION
  Report Type: Spontaneous
  Country: US (occurrence: US)
  Receive Date: 20140828
  Receipt Date: 20140828
  Transmission Date: 20150326
  Serious: Yes (Other)
  Sender: FDA-Public Use
  Company Number: US-BAYER-2014-124931

PATIENT
  Sex: Female

DRUGS (1)
  1. BETASERON [Suspect]
     Active Substance: INTERFERON BETA-1B
     Indication: MULTIPLE SCLEROSIS
     Dosage: 0.3 MG, QOD

REACTIONS (5)
  - Fall [None]
  - Injection site rash [None]
  - Multiple sclerosis [None]
  - Balance disorder [None]
  - White blood cell count decreased [None]

NARRATIVE: CASE EVENT DATE: 20140818
